FAERS Safety Report 4428317-5 (Version None)
Quarter: 2004Q3

REPORT INFORMATION
  Report Type: 
  Country: None (occurrence: None)
  Receive Date: 20040818
  Receipt Date: 20040806
  Transmission Date: 20050211
  Serious: Yes (Other)
  Sender: FDA-Public Use
  Company Number: JP-JNJFOC-20040607184

PATIENT
  Sex: Female

DRUGS (10)
  1. REMICADE [Suspect]
  2. REMICADE [Suspect]
     Indication: RHEUMATOID ARTHRITIS
  3. RHEUMATREX [Concomitant]
     Indication: RHEUMATOID ARTHRITIS
     Route: 049
  4. PREDNISOLONE [Concomitant]
     Route: 049
  5. PREDNISOLONE [Concomitant]
     Indication: RHEUMATOID ARTHRITIS
     Route: 049
  6. SOLETON [Concomitant]
     Indication: RHEUMATOID ARTHRITIS
  7. FOLIAMIN [Concomitant]
  8. FOSAMAX [Concomitant]
     Indication: OSTEOPOROSIS
     Route: 049
  9. CYTOTEC [Concomitant]
     Indication: GASTRIC DISORDER
     Route: 049
  10. THYRADIN [Concomitant]
     Indication: HYPOTHYROIDISM
     Route: 049

REACTIONS (7)
  - ARTHRALGIA [None]
  - BACTERAEMIA [None]
  - DYSSTASIA [None]
  - MONARTHRITIS [None]
  - RED BLOOD CELL COUNT DECREASED [None]
  - STAPHYLOCOCCAL INFECTION [None]
  - WHITE BLOOD CELL COUNT DECREASED [None]
